FAERS Safety Report 15988740 (Version 1)
Quarter: 2019Q1

REPORT INFORMATION
  Report Type: Spontaneous
  Country: US (occurrence: US)
  Receive Date: 20190221
  Receipt Date: 20190221
  Transmission Date: 20190418
  Serious: No
  Sender: FDA-Public Use
  Company Number: US-ASTRAZENECA-2019SE15067

PATIENT
  Age: 30773 Day
  Sex: Male

DRUGS (1)
  1. PULMICORT FLEXHALER [Suspect]
     Active Substance: BUDESONIDE
     Indication: CHRONIC OBSTRUCTIVE PULMONARY DISEASE
     Route: 055
     Dates: start: 2018

REACTIONS (9)
  - Product use in unapproved indication [Unknown]
  - Device issue [Unknown]
  - Malaise [Recovered/Resolved]
  - Off label use [Not Recovered/Not Resolved]
  - Body height decreased [Unknown]
  - Chronic obstructive pulmonary disease [Not Recovered/Not Resolved]
  - Underdose [Unknown]
  - Intentional device misuse [Recovered/Resolved]
  - Circumstance or information capable of leading to medication error [Recovered/Resolved]

NARRATIVE: CASE EVENT DATE: 201811
